FAERS Safety Report 22967977 (Version 2)
Quarter: 2025Q1

REPORT INFORMATION
  Report Type: Report from Study
  Country: US (occurrence: US)
  Receive Date: 20230921
  Receipt Date: 20250304
  Transmission Date: 20250409
  Serious: Yes (Hospitalization, Other)
  Sender: TAKEDA
  Company Number: US-TAKEDA-2021TUS063923

PATIENT
  Sex: Male
  Weight: 99.77 kg

DRUGS (15)
  1. LANADELUMAB [Suspect]
     Active Substance: LANADELUMAB
     Indication: Immune system disorder
     Dosage: 300 MILLIGRAM, Q2WEEKS
     Dates: start: 20210817
  2. LANADELUMAB [Suspect]
     Active Substance: LANADELUMAB
     Dosage: 300 MILLIGRAM, Q2WEEKS
  3. LANADELUMAB [Suspect]
     Active Substance: LANADELUMAB
  4. EPINEPHRINE [Concomitant]
     Active Substance: EPINEPHRINE
  5. STERILE WATER [Concomitant]
     Active Substance: WATER
  6. RUCONEST [Concomitant]
     Active Substance: CONESTAT ALFA
  7. DILTIAZEM [Concomitant]
     Active Substance: DILTIAZEM
  8. SODIUM CHLORIDE [Concomitant]
     Active Substance: SODIUM CHLORIDE
  9. CEFDINIR [Concomitant]
     Active Substance: CEFDINIR
  10. DANAZOL [Concomitant]
     Active Substance: DANAZOL
  11. HYDROCHLOROTHIAZIDE [Concomitant]
     Active Substance: HYDROCHLOROTHIAZIDE
  12. PREDNISONE [Concomitant]
     Active Substance: PREDNISONE
  13. IBUPROFEN [Concomitant]
     Active Substance: IBUPROFEN
  14. CETIRIZINE HCL [Concomitant]
     Active Substance: CETIRIZINE HYDROCHLORIDE
  15. ICATIBANT [Concomitant]
     Active Substance: ICATIBANT ACETATE

REACTIONS (4)
  - COVID-19 pneumonia [Unknown]
  - COVID-19 [Recovered/Resolved]
  - Wheezing [Unknown]
  - Hereditary angioedema [Unknown]
